FAERS Safety Report 8174972-6 (Version None)
Quarter: 2012Q1

REPORT INFORMATION
  Report Type: 
  Country: None (occurrence: None)
  Receive Date: 20120229
  Receipt Date: 20120220
  Transmission Date: 20120608
  Serious: Yes (Other)
  Sender: FDA-Public Use
  Company Number: PHHY2012JP014579

PATIENT
  Age: 65 Year
  Sex: Male

DRUGS (2)
  1. PREDNISONE TAB [Suspect]
     Dosage: 30 MG, PER DAY
  2. HEMODIALYSIS [Concomitant]

REACTIONS (9)
  - CATARACT [None]
  - VISION BLURRED [None]
  - VISUAL ACUITY REDUCED [None]
  - RETINAL OEDEMA [None]
  - CHORIORETINOPATHY [None]
  - RETINAL PIGMENT EPITHELIAL TEAR [None]
  - RETINAL DETACHMENT [None]
  - RETINAL DEPIGMENTATION [None]
  - KERATOPATHY [None]
